FAERS Safety Report 17975730 (Version 1)
Quarter: 2020Q3

REPORT INFORMATION
  Report Type: Spontaneous
  Country: US (occurrence: US)
  Receive Date: 20200702
  Receipt Date: 20200702
  Transmission Date: 20201103
  Serious: No
  Sender: FDA-Public Use
  Company Number: US-ASTRAZENECA-2020SE74877

PATIENT
  Sex: Male

DRUGS (1)
  1. CRESTOR [Suspect]
     Active Substance: ROSUVASTATIN CALCIUM
     Route: 048

REACTIONS (5)
  - Multimorbidity [Unknown]
  - Left ventricular dysfunction [Unknown]
  - Impaired quality of life [Unknown]
  - Post-traumatic stress disorder [Unknown]
  - Ejection fraction decreased [Unknown]
